FAERS Safety Report 17876139 (Version 1)
Quarter: 2020Q2

REPORT INFORMATION
  Report Type: Report from Study
  Country: FR (occurrence: FR)
  Receive Date: 20200609
  Receipt Date: 20200609
  Transmission Date: 20200714
  Serious: Yes (Death)
  Sender: FDA-Public Use
  Company Number: FR-PFIZER INC-2020221131

PATIENT
  Age: 70 Year
  Sex: Male

DRUGS (2)
  1. RITUXIMAB. [Suspect]
     Active Substance: RITUXIMAB
     Indication: IMMUNE THROMBOCYTOPENIA
     Dosage: UNK (ONE COURSE OF THERAPY)
     Route: 041
  2. VINCRISTINE SULFATE. [Suspect]
     Active Substance: VINCRISTINE SULFATE
     Indication: IMMUNE THROMBOCYTOPENIA
     Dosage: UNK
     Route: 065

REACTIONS (2)
  - Lung disorder [Fatal]
  - Enterococcal infection [Fatal]
